FAERS Safety Report 5444062-1 (Version None)
Quarter: 2007Q3

REPORT INFORMATION
  Report Type: 
  Country: None (occurrence: None)
  Receive Date: 20070831
  Receipt Date: 20070808
  Transmission Date: 20080115
  Serious: Yes (Other)
  Sender: FDA-Public Use
  Company Number: 20070204

PATIENT
  Sex: Female

DRUGS (1)
  1. METHYLENE BLUE INJECTION 1% [Suspect]

REACTIONS (1)
  - INJECTION SITE NECROSIS [None]
